FAERS Safety Report 12675464 (Version 1)
Quarter: 2016Q3

REPORT INFORMATION
  Report Type: Report from Study
  Country: US (occurrence: US)
  Receive Date: 20160823
  Receipt Date: 20160823
  Transmission Date: 20161109
  Serious: Yes (Hospitalization, Other)
  Sender: FDA-Public Use
  Company Number: US-AMGEN-USASL2016108860

PATIENT
  Age: 54 Year
  Sex: Male

DRUGS (1)
  1. KYPROLIS [Suspect]
     Active Substance: CARFILZOMIB
     Indication: PLASMA CELL MYELOMA
     Dosage: QWK
     Route: 065
     Dates: start: 20160804

REACTIONS (3)
  - Hospitalisation [Not Recovered/Not Resolved]
  - Laceration [Unknown]
  - Lung infection [Unknown]

NARRATIVE: CASE EVENT DATE: 201608
